FAERS Safety Report 6893345-7 (Version None)
Quarter: 2010Q3

REPORT INFORMATION
  Report Type: 
  Country: None (occurrence: None)
  Receive Date: 20100731
  Receipt Date: 20090819
  Transmission Date: 20110219
  Serious: No
  Sender: FDA-Public Use
  Company Number: US-PFIZER INC-2009208626

PATIENT
  Sex: Female

DRUGS (4)
  1. LIPITOR [Suspect]
     Dosage: 40 MG, 1X/DAY
  2. VALSARTAN [Concomitant]
     Dosage: UNK
  3. METFORMIN [Concomitant]
     Dosage: UNK
  4. SYNTHROID [Concomitant]
     Dosage: UNK

REACTIONS (3)
  - ARTHRALGIA [None]
  - MUSCULOSKELETAL PAIN [None]
  - MYALGIA [None]
